FAERS Safety Report 8469659 (Version 4)
Quarter: 2013Q2

REPORT INFORMATION
  Report Type: Report from Study
  Country: US (occurrence: US)
  Receive Date: 20120321
  Receipt Date: 20130418
  Transmission Date: 20140414
  Serious: Yes (Hospitalization)
  Sender: FDA-Public Use
  Company Number: US-UCBSA-053620

PATIENT
  Age: 31 Year
  Sex: Male
  Weight: 70.45 kg

DRUGS (6)
  1. LACOSAMIDE [Suspect]
     Indication: EPILEPSY
     Route: 048
     Dates: start: 20120112
  2. LACOSAMIDE [Suspect]
     Indication: EPILEPSY
     Dosage: PREVIOUS STUDY: SP902
     Route: 048
     Dates: start: 20110310
  3. KEPPRA [Concomitant]
     Route: 048
  4. DILANTIN [Concomitant]
     Indication: CONVULSION
     Dosage: BED TIME 3 CAPSULE
     Route: 048
  5. DIPRIVAN [Concomitant]
     Dosage: UNKNOWN
  6. LAMICTAL [Concomitant]
     Route: 048
     Dates: start: 201201

REACTIONS (2)
  - Status epilepticus [Recovered/Resolved]
  - Convulsion [Recovered/Resolved]
